FAERS Safety Report 9394271 (Version 1)
Quarter: 2013Q3

REPORT INFORMATION
  Report Type: Spontaneous
  Country: US (occurrence: US)
  Receive Date: 20130711
  Receipt Date: 20130711
  Transmission Date: 20140515
  Serious: No
  Sender: FDA-Public Use
  Company Number: US-B.I. PHARMACEUTICALS,INC./RIDGEFIELD-2013-BI-19804BP

PATIENT
  Age: 47 Year
  Sex: Male
  Weight: 113 kg

DRUGS (4)
  1. COMBIVENT [Suspect]
     Indication: ASTHMA
     Dosage: STRENGTH: 20 MCG / 100 MCG; DAILY DOSE: 80MCG/400MCG
     Route: 055
     Dates: start: 20130708
  2. COMBIVENT [Suspect]
     Indication: ASTHMA
     Dosage: STRENGTH: 18 MCG / 103 MCG; DAILY DOSE: 72MCG/412MCG
     Route: 055
     Dates: start: 2012, end: 201307
  3. PRO AIR [Concomitant]
     Indication: ASTHMA
     Route: 055
  4. ADVAIR [Concomitant]
     Indication: ASTHMA
     Dosage: 4 PUF
     Route: 055

REACTIONS (3)
  - Off label use [Not Recovered/Not Resolved]
  - Off label use [Recovered/Resolved]
  - Incorrect drug administration rate [Recovered/Resolved]
